FAERS Safety Report 24876847 (Version 2)
Quarter: 2025Q1

REPORT INFORMATION
  Report Type: Spontaneous
  Country: IL (occurrence: IL)
  Receive Date: 20250123
  Receipt Date: 20250124
  Transmission Date: 20250408
  Serious: Yes (Other)
  Sender: GENMAB
  Company Number: IL-ABBVIE-6094915

PATIENT
  Age: 30 Year
  Sex: Male

DRUGS (1)
  1. EPCORITAMAB [Suspect]
     Active Substance: EPCORITAMAB
     Indication: Diffuse large B-cell lymphoma
     Route: 058

REACTIONS (2)
  - Gastrointestinal disorder [Not Recovered/Not Resolved]
  - Gastrointestinal perforation [Not Recovered/Not Resolved]
